FAERS Safety Report 10787167 (Version 2)
Quarter: 2015Q1

REPORT INFORMATION
  Report Type: Spontaneous
  Country: US (occurrence: US)
  Receive Date: 20150211
  Receipt Date: 20150212
  Transmission Date: 20150721
  Serious: No
  Sender: FDA-Public Use
  Company Number: US-GLAXOSMITHKLINE-A1071665A

PATIENT

DRUGS (2)
  1. LAMICTAL [Suspect]
     Active Substance: LAMOTRIGINE
     Indication: PRODUCT USED FOR UNKNOWN INDICATION
     Dosage: 100MG
     Route: 065
     Dates: start: 20110720
  2. LAMICTAL XR [Suspect]
     Active Substance: LAMOTRIGINE
     Indication: SEIZURE
     Dosage: 100 MG, UNK

REACTIONS (1)
  - Drug dispensing error [Unknown]
